FAERS Safety Report 6834604-3 (Version None)
Quarter: 2010Q3

REPORT INFORMATION
  Report Type: 
  Country: None (occurrence: None)
  Receive Date: 20100712
  Receipt Date: 20070424
  Transmission Date: 20110219
  Serious: No
  Sender: FDA-Public Use
  Company Number: US-PFIZER INC-2007034462

PATIENT
  Sex: Female
  Weight: 145 kg

DRUGS (5)
  1. CHANTIX [Suspect]
     Indication: SMOKING CESSATION THERAPY
     Dates: start: 20070101, end: 20070401
  2. COMBIVENT [Concomitant]
  3. FLOVENT [Concomitant]
  4. SEREVENT [Concomitant]
  5. FLEXERIL [Concomitant]
     Indication: RESTLESS LEGS SYNDROME

REACTIONS (7)
  - INFLUENZA [None]
  - NASOPHARYNGITIS [None]
  - SINUS HEADACHE [None]
  - UPPER-AIRWAY COUGH SYNDROME [None]
  - VOMITING [None]
  - WEIGHT DECREASED [None]
  - WEIGHT INCREASED [None]
